FAERS Safety Report 5981078-0 (Version None)
Quarter: 2008Q4

REPORT INFORMATION
  Report Type: 
  Country: None (occurrence: None)
  Receive Date: 20081205
  Receipt Date: 20081112
  Transmission Date: 20090506
  Serious: No
  Sender: FDA-Public Use
  Company Number: A0754538A

PATIENT
  Age: 40 Year
  Sex: Female

DRUGS (2)
  1. COMMIT [Suspect]
     Dosage: 20LOZ PER DAY
  2. NICORETTE [Suspect]
     Indication: SMOKING CESSATION THERAPY
     Route: 002
     Dates: start: 20060101

REACTIONS (2)
  - HICCUPS [None]
  - INTENTIONAL DRUG MISUSE [None]
